FAERS Safety Report 7606426-7 (Version None)
Quarter: 2011Q3

REPORT INFORMATION
  Report Type: 
  Country: None (occurrence: None)
  Receive Date: 20110712
  Receipt Date: 20110712
  Transmission Date: 20111222
  Serious: Yes (Hospitalization)
  Sender: FDA-Public Use
  Company Number: None

PATIENT
  Age: 82 Year
  Sex: Male
  Weight: 92.4 kg

DRUGS (1)
  1. HYDRALAZINE HCL [Suspect]
     Indication: HYPERTENSION
     Dosage: 100 MG TID PO
     Route: 048

REACTIONS (6)
  - PYREXIA [None]
  - HYPERHIDROSIS [None]
  - PLEURAL EFFUSION [None]
  - CONDITION AGGRAVATED [None]
  - LUPUS-LIKE SYNDROME [None]
  - CARDIAC FAILURE CONGESTIVE [None]
